FAERS Safety Report 4916751-6 (Version None)
Quarter: 2006Q1

REPORT INFORMATION
  Report Type: 
  Country: None (occurrence: None)
  Receive Date: 20060214
  Receipt Date: 20060201
  Transmission Date: 20060701
  Serious: Yes (Death)
  Sender: FDA-Public Use
  Company Number: 2005126928

PATIENT
  Age: 33 Year
  Sex: Male

DRUGS (14)
  1. ZYVOX [Suspect]
     Indication: STAPHYLOCOCCAL INFECTION
     Dosage: 300 MG (300 MG), INTRAVENOUS; 300 MG,  (300 MG), ORAL; 600 MG ORAL
     Route: 042
     Dates: start: 20050822, end: 20050822
  2. ZYVOX [Suspect]
     Indication: STAPHYLOCOCCAL INFECTION
     Dosage: 300 MG (300 MG), INTRAVENOUS; 300 MG,  (300 MG), ORAL; 600 MG ORAL
     Route: 042
     Dates: start: 20050822, end: 20050822
  3. ZYVOX [Suspect]
     Indication: STAPHYLOCOCCAL INFECTION
     Dosage: 300 MG (300 MG), INTRAVENOUS; 300 MG,  (300 MG), ORAL; 600 MG ORAL
     Route: 042
     Dates: start: 20050822, end: 20050822
  4. DIGOXIN [Concomitant]
  5. SPIRONOLACTONE [Concomitant]
  6. OMEPRAZOLE [Concomitant]
  7. WARFARIN SODIUM [Concomitant]
  8. LASIX [Concomitant]
  9. TICLOPIDINE HCL [Concomitant]
  10. SLOW-K [Concomitant]
  11. HALCION [Concomitant]
  12. BISOPROLOL FUMARATE [Concomitant]
  13. ASPIRIN [Concomitant]
  14. MEROPEN (MEROPENEM) [Concomitant]

REACTIONS (3)
  - HAEMOGLOBIN DECREASED [None]
  - PLATELET COUNT DECREASED [None]
  - WHITE BLOOD CELL COUNT DECREASED [None]
